FAERS Safety Report 6736751-3 (Version None)
Quarter: 2010Q2

REPORT INFORMATION
  Report Type: 
  Country: None (occurrence: None)
  Receive Date: 20100521
  Receipt Date: 20100511
  Transmission Date: 20101027
  Serious: Yes (Other)
  Sender: FDA-Public Use
  Company Number: US-PFIZER INC-2010059997

PATIENT
  Sex: Male

DRUGS (4)
  1. LIPITOR [Suspect]
     Indication: BLOOD CHOLESTEROL INCREASED
     Dosage: 40 MG, DAILY
     Route: 048
  2. VALIUM [Suspect]
  3. ALCOHOL [Suspect]
  4. COCAINE [Suspect]

REACTIONS (4)
  - ALCOHOL ABUSE [None]
  - DRUG ABUSE [None]
  - DRUG DEPENDENCE [None]
  - DRUG SCREEN POSITIVE [None]
